FAERS Safety Report 4964728-7 (Version None)
Quarter: 2006Q1

REPORT INFORMATION
  Report Type: 
  Country: None (occurrence: None)
  Receive Date: 20060331
  Receipt Date: 20060320
  Transmission Date: 20060701
  Serious: Yes (Death, Other)
  Sender: FDA-Public Use
  Company Number: DE200603005253

PATIENT
  Age: 80 Year
  Sex: Female

DRUGS (13)
  1. ZYPREXA [Suspect]
     Indication: DELIRIUM
     Dosage: SEE IMAGE
     Route: 048
     Dates: start: 20050310, end: 20050310
  2. ZYPREXA [Suspect]
     Indication: DELIRIUM
     Dosage: SEE IMAGE
     Route: 048
     Dates: start: 20050311, end: 20050321
  3. DIPIDOLOR (PIRITRAMIDE) [Concomitant]
  4. DIAZEPAM [Concomitant]
  5. DIURETICS [Concomitant]
  6. BISOPROLOL HEMIFUMARATE       (BISOPROLOL HEMIFUMARATE) [Concomitant]
  7. ASPIRIN [Concomitant]
  8. LEVOTHYROXINE SODIUM [Concomitant]
  9. GLIMEPIRIDE [Concomitant]
  10. TRIMETHOPRIM [Concomitant]
  11. PROTHIPENDYL HYDROCHLORIDE (PROTHIPENDYL HYDROCHLORIDE) [Concomitant]
  12. SEROQUEL [Concomitant]
  13. MELPERONE          (MELPERONE) [Concomitant]

REACTIONS (16)
  - BLOOD ALKALINE PHOSPHATASE INCREASED [None]
  - BLOOD GLUCOSE INCREASED [None]
  - BLOOD SODIUM INCREASED [None]
  - C-REACTIVE PROTEIN INCREASED [None]
  - CEREBRAL HAEMORRHAGE [None]
  - CEREBRAL ISCHAEMIA [None]
  - DRUG LEVEL INCREASED [None]
  - DYSARTHRIA [None]
  - DYSPHAGIA [None]
  - EXTRAPYRAMIDAL DISORDER [None]
  - GENERAL PHYSICAL HEALTH DETERIORATION [None]
  - LUNG INFECTION [None]
  - PLATELET COUNT INCREASED [None]
  - RESPIRATORY DEPRESSION [None]
  - SOMNOLENCE [None]
  - URINARY TRACT INFECTION [None]
